FAERS Safety Report 19676899 (Version 3)
Quarter: 2021Q3

REPORT INFORMATION
  Report Type: Spontaneous
  Country: JP (occurrence: JP)
  Receive Date: 20210809
  Receipt Date: 20210818
  Transmission Date: 20211014
  Serious: Yes (Hospitalization, Other)
  Sender: FDA-Public Use
  Company Number: JP-VALIDUS PHARMACEUTICALS LLC-JP-VDP-2021-000298

PATIENT
  Age: 5 Year
  Sex: Female
  Weight: 13.8 kg

DRUGS (6)
  1. FUROSEMIDE. [Suspect]
     Active Substance: FUROSEMIDE
     Indication: BICUSPID AORTIC VALVE
     Dosage: 1 MG/KG, QD
     Route: 065
  2. ENALAPRIL MALEATE. [Concomitant]
     Active Substance: ENALAPRIL MALEATE
     Indication: PRODUCT USED FOR UNKNOWN INDICATION
     Dosage: UNK
     Route: 065
  3. DIAZOXIDE [Suspect]
     Active Substance: DIAZOXIDE
     Indication: HYPERINSULINAEMIA
     Dosage: 5 MG/KG, QD
     Route: 065
  4. SPIRONOLACTONE. [Suspect]
     Active Substance: SPIRONOLACTONE
     Indication: AORTIC VALVE INCOMPETENCE
  5. SPIRONOLACTONE. [Suspect]
     Active Substance: SPIRONOLACTONE
     Indication: BICUSPID AORTIC VALVE
     Dosage: 1 MG/KG, QD
     Route: 065
  6. FUROSEMIDE. [Suspect]
     Active Substance: FUROSEMIDE
     Indication: AORTIC VALVE INCOMPETENCE

REACTIONS (15)
  - Hyperglycaemic hyperosmolar nonketotic syndrome [Recovered/Resolved]
  - Tachycardia [Recovered/Resolved]
  - Dehydration [Recovered/Resolved]
  - Renal impairment [Recovered/Resolved]
  - Hypernatraemia [Recovered/Resolved]
  - Polyuria [Recovered/Resolved]
  - Drug interaction [Recovered/Resolved]
  - Hyperglycaemia [Recovered/Resolved]
  - Lethargy [Recovered/Resolved]
  - Pyrexia [Unknown]
  - Hypovolaemic shock [Recovered/Resolved]
  - Dry mouth [Recovered/Resolved]
  - Urinary tract infection [Unknown]
  - Weight decreased [Recovered/Resolved]
  - Hyperinsulinaemic hypoglycaemia [Recovered/Resolved]
